FAERS Safety Report 7591600-9 (Version None)
Quarter: 2011Q3

REPORT INFORMATION
  Report Type: 
  Country: None (occurrence: None)
  Receive Date: 20110706
  Receipt Date: 20110616
  Transmission Date: 20111222
  Serious: Yes (Other)
  Sender: FDA-Public Use
  Company Number: US-BAYER-201014091NA

PATIENT
  Age: 25 Year
  Sex: Female
  Weight: 68.027 kg

DRUGS (4)
  1. FERROUS SULFATE TAB [Concomitant]
     Indication: PRENATAL CARE
     Dosage: UNK UNK, QD
  2. CALCIUM CARBONATE [Concomitant]
     Indication: PRENATAL CARE
     Dosage: UNK UNK, QD
  3. YASMIN [Suspect]
     Indication: CONTRACEPTION
     Dosage: UNK
     Route: 048
     Dates: start: 20050801, end: 20061201
  4. PRENATAL VITAMINS [Concomitant]
     Indication: PRENATAL CARE
     Dosage: UNK UNK, QD
     Dates: start: 20040701

REACTIONS (3)
  - GALLBLADDER DISORDER [None]
  - PAIN [None]
  - CHOLELITHIASIS [None]
